FAERS Safety Report 8553773-0 (Version None)
Quarter: 2012Q3

REPORT INFORMATION
  Report Type: 
  Country: None (occurrence: None)
  Receive Date: 20120731
  Receipt Date: 20120724
  Transmission Date: 20120928
  Serious: Yes (Death)
  Sender: FDA-Public Use
  Company Number: JP-GLAXOSMITHKLINE-B0818517A

PATIENT
  Age: 36 Year
  Sex: Male

DRUGS (6)
  1. LAMICTAL [Suspect]
     Indication: BIPOLAR DISORDER
     Route: 048
     Dates: start: 20110101, end: 20120101
  2. LAMICTAL [Suspect]
     Dosage: 200MG PER DAY
     Route: 048
     Dates: start: 20120101
  3. LEXOTAN [Concomitant]
     Indication: ANXIETY
     Route: 048
     Dates: start: 20110101
  4. SEROQUEL [Concomitant]
     Indication: BIPOLAR I DISORDER
     Dosage: 200MG PER DAY
     Route: 048
     Dates: start: 20110101
  5. ROHYPNOL [Concomitant]
     Indication: INSOMNIA
     Dosage: 4MG PER DAY
     Route: 048
     Dates: start: 20110101
  6. PAXIL [Suspect]
     Indication: BIPOLAR I DISORDER
     Dosage: 40MG PER DAY
     Route: 048
     Dates: start: 20110101

REACTIONS (4)
  - HYPOMANIA [None]
  - OVERDOSE [None]
  - DEPRESSION [None]
  - COMPLETED SUICIDE [None]
